FAERS Safety Report 21242896 (Version 7)
Quarter: 2022Q4

REPORT INFORMATION
  Report Type: Spontaneous
  Country: CA (occurrence: CA)
  Receive Date: 20220823
  Receipt Date: 20221030
  Transmission Date: 20230113
  Serious: Yes (Other)
  Sender: FDA-Public Use
  Company Number: CA-PFIZER INC-202201070412

PATIENT
  Age: 57 Year
  Sex: Male

DRUGS (3)
  1. XELJANZ [Suspect]
     Active Substance: TOFACITINIB CITRATE
     Indication: Colitis ulcerative
     Dosage: 10 MG, 2X/DAY
     Route: 048
     Dates: start: 20220722
  2. ENTYVIO [Concomitant]
     Active Substance: VEDOLIZUMAB
     Dosage: 300 MG, EVERY 4 WEEKS
     Route: 065
     Dates: start: 202110
  3. MESALAMINE [Concomitant]
     Active Substance: MESALAMINE
     Dosage: 500 MG
     Route: 065

REACTIONS (12)
  - Haematochezia [Recovered/Resolved]
  - Disease recurrence [Unknown]
  - Headache [Unknown]
  - Arthralgia [Unknown]
  - Stress [Unknown]
  - Poor quality sleep [Unknown]
  - Anxiety [Unknown]
  - Frequent bowel movements [Not Recovered/Not Resolved]
  - Anger [Unknown]
  - Condition aggravated [Unknown]
  - Dyspnoea [Recovered/Resolved]
  - Diarrhoea [Recovered/Resolved]

NARRATIVE: CASE EVENT DATE: 20220101
